FAERS Safety Report 10599319 (Version 1)
Quarter: 2014Q4

REPORT INFORMATION
  Report Type: Spontaneous
  Country: US (occurrence: US)
  Receive Date: 20141121
  Receipt Date: 20141121
  Transmission Date: 20150529
  Serious: No
  Sender: FDA-Public Use
  Company Number: US-GLAXOSMITHKLINE-US2014GSK021580

PATIENT
  Age: 67 Year
  Sex: Female

DRUGS (12)
  1. HYDROCODONE [Concomitant]
     Active Substance: HYDROCODONE
  2. IRON [Concomitant]
     Active Substance: IRON
  3. DIGOXIN. [Concomitant]
     Active Substance: DIGOXIN
  4. LOVASTATIN. [Concomitant]
     Active Substance: LOVASTATIN
  5. WATER PILL [Concomitant]
     Active Substance: UNSPECIFIED INGREDIENT
  6. LISINOPRIL. [Concomitant]
     Active Substance: LISINOPRIL
  7. XANAX [Concomitant]
     Active Substance: ALPRAZOLAM
  8. DILTIAZEM [Concomitant]
     Active Substance: DILTIAZEM
  9. PREDNISONE. [Concomitant]
     Active Substance: PREDNISONE
  10. ADVAIR DISKUS [Suspect]
     Active Substance: FLUTICASONE PROPIONATE\SALMETEROL XINAFOATE
     Indication: CHRONIC OBSTRUCTIVE PULMONARY DISEASE
     Dosage: 1 PUFF(S), BID
     Route: 055
  11. COMBIVENT [Concomitant]
     Active Substance: ALBUTEROL SULFATE\IPRATROPIUM BROMIDE
  12. ASPIRIN. [Concomitant]
     Active Substance: ASPIRIN

REACTIONS (4)
  - Dizziness [Unknown]
  - Fatigue [Unknown]
  - Malaise [Not Recovered/Not Resolved]
  - Fall [Recovered/Resolved]

NARRATIVE: CASE EVENT DATE: 201401
